FAERS Safety Report 7684913-3 (Version None)
Quarter: 2011Q3

REPORT INFORMATION
  Report Type: 
  Country: None (occurrence: None)
  Receive Date: 20110816
  Receipt Date: 20110803
  Transmission Date: 20111222
  Serious: Yes (Hospitalization)
  Sender: FDA-Public Use
  Company Number: JP-UCBSA-015495

PATIENT
  Sex: Female
  Weight: 47.8 kg

DRUGS (35)
  1. SULFASALAZINE [Concomitant]
     Dosage: DAILY DOSE: 1000 MG
     Dates: start: 20110502
  2. DIFLUCORTOLONE VALERATE [Concomitant]
     Dosage: ADEQUATE DOSE
     Dates: start: 20110330
  3. AMPHOTERICIN B [Concomitant]
     Dosage: DAILY DOSE: 300MG
     Dates: start: 20110427
  4. DIFLUCORTOLONE VALERATE [Concomitant]
     Dosage: ADEQUATE DOSE
     Dates: start: 20100617, end: 20100625
  5. CERTOLIZUMAB PEGOL [Suspect]
     Route: 058
     Dates: start: 20091210, end: 20100707
  6. PREDNISOLONE [Concomitant]
     Dosage: DAILY DOSE:  5MG
     Dates: start: 20060613
  7. PREDNISOLONE [Concomitant]
     Dosage: DAILY DOSE: 1MG
     Dates: start: 20100527, end: 20100721
  8. AURANOFIN [Concomitant]
     Dosage: DAILY DOSE: 6MG
     Dates: start: 20070402, end: 20101012
  9. SODIUM AZULENE SULFONATE L-GLUTAMINE [Concomitant]
     Dosage: DAILY DOSE: 0.67G
     Dates: start: 20110427
  10. PREDNISOLONE [Concomitant]
     Dosage: DAILY DOSE: 5MG
     Dates: start: 20110427
  11. SULFASALAZINE [Concomitant]
     Dosage: DAILY DOSE:  1000 MG
     Dates: start: 20081020
  12. BUCILLAMINE [Concomitant]
     Dosage: DAILY DOSE: 200MG
     Dates: start: 20070625, end: 20100803
  13. LOXOPROFEN SODIUM [Concomitant]
     Dosage: ADEQUATE DOSE
     Dates: start: 20100414
  14. ATORVASTATIN CALCIUM [Concomitant]
     Dosage: DAILY DOSE: 10MG
     Dates: start: 20100203
  15. THEOPHYLLINE [Concomitant]
     Dosage: DAILY DOSE: 200 MG
     Dates: start: 20110427
  16. CERTOLIZUMAB PEGOL [Suspect]
     Route: 058
     Dates: end: 20110413
  17. CERTOLIZUMAB PEGOL [Suspect]
     Route: 058
     Dates: start: 20110510
  18. FAMOTIDINE [Concomitant]
     Dates: start: 20110427
  19. ISONIAZID [Concomitant]
     Dosage: DAILY DOSE: 300MG
     Dates: start: 20090803
  20. SENNOSIDE [Concomitant]
     Dosage: DAILY DOSE: 24MG AS NEEDED
     Dates: start: 20110302
  21. LIRANAFTATE [Concomitant]
     Dosage: ADEQUATE DOSE
     Dates: start: 20110330
  22. SODIUM RISEDRONATE HYDRATE [Concomitant]
     Dosage: ONE POINT SUSPENSION OF THE ADMINISTRATION
     Dates: start: 20081020
  23. ISONIAZID [Concomitant]
     Dosage: DAILY DOSE: 300MG
     Dates: start: 20110427
  24. ATORVASTATIN CALCIUM [Concomitant]
     Dosage: DAILY DOSE: 10MG
     Dates: start: 20110427
  25. THEOPHYLLINE [Concomitant]
     Dosage: DAILY DOSE: 200MG
     Dates: start: 20060101
  26. SENNOSIDE [Concomitant]
     Dosage: DAILY DOSE: 12MG
     Dates: start: 20060613, end: 20110301
  27. OLOPATADINE HYDROCHLORIDE [Concomitant]
     Dosage: DAILY DOSE: 10MG
     Dates: start: 20100617, end: 20100625
  28. SULFAMETHOXAZOLE AND TRIMETHOPRIM [Concomitant]
     Dosage: 4 TABLETS / WEEK
     Dates: start: 20110302
  29. FAMOTIDINE [Concomitant]
     Dosage: DAILY DOSE: 40MG
     Dates: start: 20081020
  30. SODIUM AZULENE SULFONATE L-GLUTAMINE [Concomitant]
     Dosage: DAILY DOSE: 0.67 G
     Dates: start: 20060613
  31. VIDARABINE [Concomitant]
     Dosage: ADEQUATE DOSE
     Dates: start: 20100804
  32. LIRANAFTATE [Concomitant]
     Dosage: ADEQUATE DOSE
     Dates: start: 20100823
  33. TERBINAFINE HCL [Concomitant]
     Dosage: DAILY DOSE: 125MG
     Dates: start: 20101111
  34. CERTOLIZUMAB PEGOL [Suspect]
     Indication: RHEUMATOID ARTHRITIS
     Route: 058
     Dates: start: 20090825, end: 20091202
  35. AMPHOTERICIN B [Concomitant]
     Dosage: DAILY DOSE: 300MG
     Dates: start: 20100623

REACTIONS (2)
  - DERMAL CYST [None]
  - DIZZINESS POSTURAL [None]
